FAERS Safety Report 6316177-7 (Version None)
Quarter: 2009Q3

REPORT INFORMATION
  Report Type: 
  Country: None (occurrence: None)
  Receive Date: 20090820
  Receipt Date: 20090812
  Transmission Date: 20100115
  Serious: Yes (Hospitalization, Other)
  Sender: FDA-Public Use
  Company Number: BR-ASTRAZENECA-2009SE08173

PATIENT
  Age: 66 Year
  Sex: Male
  Weight: 80 kg

DRUGS (1)
  1. SELOZOK [Suspect]
     Indication: HYPERTENSION
     Route: 048

REACTIONS (3)
  - ANXIETY [None]
  - DEPRESSION [None]
  - FEMORAL ARTERY OCCLUSION [None]
